FAERS Safety Report 17687536 (Version 1)
Quarter: 2020Q2

REPORT INFORMATION
  Report Type: Spontaneous
  Country: US (occurrence: US)
  Receive Date: 20200421
  Receipt Date: 20200421
  Transmission Date: 20200714
  Serious: Yes (Hospitalization, Other)
  Sender: FDA-Public Use
  Company Number: US-EMCURE PHARMACEUTICALS LTD-2020-EPL-000448

PATIENT
  Age: 76 Year
  Sex: Female

DRUGS (9)
  1. GLARGINE INSULIN [Concomitant]
     Active Substance: INSULIN GLARGINE
  2. POMALIDOMIDE [Suspect]
     Active Substance: POMALIDOMIDE
     Indication: PLASMA CELL MYELOMA
     Dosage: 3 MILLIGRAM, QD, TAKEN FOUR DAYS OUT OF A PLANNED 21-DAY COURSE
     Route: 065
  3. FILGRASTIM [Concomitant]
     Active Substance: FILGRASTIM
  4. SIMVASTATIN. [Concomitant]
     Active Substance: SIMVASTATIN
  5. PIPERACILLIN/TAZOBACTAM [Concomitant]
     Active Substance: PIPERACILLIN SODIUM\TAZOBACTAM SODIUM
     Indication: EVIDENCE BASED TREATMENT
     Dosage: RECEIVED FOR A TOTAL OF SEVEN DAYS
  6. LEVOFLOXACIN. [Suspect]
     Active Substance: LEVOFLOXACIN
     Indication: EVIDENCE BASED TREATMENT
     Route: 065
  7. AMITRIPTYLINE [Concomitant]
     Active Substance: AMITRIPTYLINE
  8. FOLIC ACID. [Concomitant]
     Active Substance: FOLIC ACID
  9. VANCOMYCIN [Concomitant]
     Active Substance: VANCOMYCIN
     Indication: EVIDENCE BASED TREATMENT
     Dosage: RECEIVED FOR A TOTAL OF SEVEN DAYS

REACTIONS (2)
  - Crystal nephropathy [Recovering/Resolving]
  - Acute kidney injury [Recovering/Resolving]
